FAERS Safety Report 20819933 (Version 3)
Quarter: 2025Q4

REPORT INFORMATION
  Report Type: Spontaneous
  Country: US (occurrence: US)
  Receive Date: 20220512
  Receipt Date: 20251224
  Transmission Date: 20260118
  Serious: Yes (Death, Other)
  Sender: TEVA
  Company Number: US-TEVA-2022-US-2035048

PATIENT
  Age: 74 Year
  Sex: Male

DRUGS (2)
  1. CARBOPLATIN [Suspect]
     Active Substance: CARBOPLATIN
     Indication: Neuroendocrine carcinoma
     Dosage: RECEIVED 2 CYCLES.
     Route: 065
  2. ETOPOSIDE [Suspect]
     Active Substance: ETOPOSIDE
     Indication: Neuroendocrine carcinoma
     Dosage: RECEIVED 2 CYCLES
     Route: 065

REACTIONS (2)
  - Drug ineffective [Fatal]
  - Pancytopenia [Unknown]
